FAERS Safety Report 5054962-2 (Version None)
Quarter: 2006Q3

REPORT INFORMATION
  Report Type: 
  Country: None (occurrence: None)
  Receive Date: 20060719
  Receipt Date: 20060627
  Transmission Date: 20061208
  Serious: Yes (Life-Threatening, Hospitalization, Other)
  Sender: FDA-Public Use
  Company Number: 2006-004757

PATIENT
  Age: 19 Year
  Sex: Male

DRUGS (2)
  1. FLOLAN [Suspect]
     Indication: PULMONARY HYPERTENSION
     Dosage: 1.5MG CONTINUOUS
     Route: 042
     Dates: start: 20040101
  2. BOSENTAN [Suspect]
     Indication: PULMONARY HYPERTENSION

REACTIONS (2)
  - LIVER FUNCTION TEST ABNORMAL [None]
  - SEPSIS [None]
